FAERS Safety Report 11607146 (Version 1)
Quarter: 2015Q3

REPORT INFORMATION
  Report Type: Spontaneous
  Country: US (occurrence: US)
  Receive Date: 20150916
  Receipt Date: 20150916
  Transmission Date: 20151125
  Serious: No
  Sender: FDA-Public Use
  Company Number: US-ELI_LILLY_AND_COMPANY-US201401008069

PATIENT
  Sex: Female

DRUGS (6)
  1. HUMALOG [Suspect]
     Active Substance: INSULIN LISPRO
     Dosage: 1 DF, UNKNOWN
     Route: 065
  2. LANTUS [Concomitant]
     Active Substance: INSULIN GLARGINE
     Indication: TYPE 1 DIABETES MELLITUS
     Dosage: 1 DF, EACH EVENING
     Route: 065
     Dates: start: 201206, end: 201212
  3. VENTOLIN [Concomitant]
     Active Substance: ALBUTEROL SULFATE
     Indication: PRODUCT USED FOR UNKNOWN INDICATION
     Dosage: 1 DF, UNKNOWN
     Route: 065
  4. HUMALOG [Suspect]
     Active Substance: INSULIN LISPRO
     Dosage: 1 DF, UNKNOWN
     Route: 065
  5. HUMALOG [Suspect]
     Active Substance: INSULIN LISPRO
     Indication: TYPE 1 DIABETES MELLITUS
     Dosage: 1 DF, UNKNOWN
     Route: 065
     Dates: start: 201206
  6. LISINOPRIL. [Concomitant]
     Active Substance: LISINOPRIL
     Indication: PROTEIN URINE PRESENT
     Dosage: 2.5 MG, EACH MORNING
     Route: 065

REACTIONS (4)
  - Glycosylated haemoglobin increased [Unknown]
  - Pancreatic disorder [Unknown]
  - Blood glucose increased [Unknown]
  - Staphylococcal infection [Unknown]
